FAERS Safety Report 6347880-0 (Version None)
Quarter: 2009Q3

REPORT INFORMATION
  Report Type: 
  Country: None (occurrence: None)
  Receive Date: 20090910
  Receipt Date: 20090909
  Transmission Date: 20100115
  Serious: Yes (Hospitalization)
  Sender: FDA-Public Use
  Company Number: US-B.I. PHARMACEUTICALS,INC./RIDGEFIELD-2009-BP-09023BP

PATIENT
  Age: 70 Year
  Sex: Male

DRUGS (7)
  1. CATAPRES-TTS-1 [Suspect]
     Indication: HYPERTENSION
     Dosage: 0.2 MG
     Route: 061
     Dates: start: 20030101
  2. NEXIUM [Concomitant]
     Indication: GASTROOESOPHAGEAL REFLUX DISEASE
  3. NTG SL [Concomitant]
     Indication: VASCULAR GRAFT
  4. NORVASC [Concomitant]
     Indication: HYPERTENSION
  5. LISINOPRIL [Concomitant]
     Indication: HYPERTENSION
  6. DIAZIDE [Concomitant]
     Indication: HYPERTENSION
  7. SECTRAL [Concomitant]
     Indication: HYPERTENSION

REACTIONS (2)
  - CORONARY ARTERY BYPASS [None]
  - HYPERTENSION [None]
